FAERS Safety Report 5839544-4 (Version None)
Quarter: 2008Q3

REPORT INFORMATION
  Report Type: 
  Country: None (occurrence: None)
  Receive Date: 20080811
  Receipt Date: 20080722
  Transmission Date: 20090109
  Serious: Yes (Other)
  Sender: FDA-Public Use
  Company Number: US-BAYER-99/00392-USE

PATIENT
  Age: 26 Year
  Sex: Female
  Weight: 52 kg

DRUGS (6)
  1. BETASERON [Suspect]
     Indication: MULTIPLE SCLEROSIS
     Dosage: TOTAL DAILY DOSE: 8 MIU
     Route: 058
     Dates: start: 19980526, end: 19981101
  2. PAXIL [Concomitant]
  3. XANAX [Concomitant]
  4. CLARITIN [Concomitant]
  5. AMITRIPTYLINE HCL [Concomitant]
  6. CYPROHEPTADINE HCL [Concomitant]

REACTIONS (4)
  - INJECTION SITE ATROPHY [None]
  - INJECTION SITE NECROSIS [None]
  - INJECTION SITE SCAR [None]
  - INJECTION SITE ULCER [None]
